FAERS Safety Report 14159089 (Version 2)
Quarter: 2017Q4

REPORT INFORMATION
  Report Type: Report from Study
  Country: NZ (occurrence: NZ)
  Receive Date: 20171103
  Receipt Date: 20171124
  Transmission Date: 20180321
  Serious: Yes (Death, Hospitalization, Other)
  Sender: FDA-Public Use
  Company Number: NZ-AMGEN-NZLNI2017165402

PATIENT
  Age: 68 Year
  Sex: Female

DRUGS (6)
  1. DIALYSATE [Concomitant]
     Dosage: 1.5 MMOL CALCIUM
  2. ONE ALPHA [Concomitant]
     Active Substance: ALFACALCIDOL
     Dosage: 1.0 MCG, QD
  3. CALCITAB [Concomitant]
     Dosage: UNK
  4. CINACALCET HCL [Suspect]
     Active Substance: CINACALCET HYDROCHLORIDE
     Indication: PRODUCT USED FOR UNKNOWN INDICATION
     Dosage: 60 MG, QD
     Route: 048
  5. CINACALCET HCL [Suspect]
     Active Substance: CINACALCET HYDROCHLORIDE
     Dosage: 90 MG, QD (AS NECESSARY)
     Route: 048
     Dates: end: 20170814
  6. CALCIUM CARBONATE. [Concomitant]
     Active Substance: CALCIUM CARBONATE
     Dosage: 3 DF, TID

REACTIONS (2)
  - Lower respiratory tract infection [Unknown]
  - Renal failure [Fatal]

NARRATIVE: CASE EVENT DATE: 20170813
